FAERS Safety Report 9551500 (Version 1)
Quarter: 2013Q3

REPORT INFORMATION
  Report Type: Spontaneous
  Country: US (occurrence: US)
  Receive Date: 20130925
  Receipt Date: 20130925
  Transmission Date: 20140515
  Serious: Yes (Other)
  Sender: FDA-Public Use
  Company Number: US-CELGENEUS-163-21880-13092447

PATIENT
  Sex: Male

DRUGS (4)
  1. REVLIMID [Suspect]
     Indication: MONOCLONAL GAMMOPATHY
     Dosage: 10 MILLIGRAM
     Route: 048
     Dates: start: 201101
  2. REVLIMID [Suspect]
     Dosage: 5 MILLIGRAM
     Route: 048
     Dates: start: 201103
  3. REVLIMID [Suspect]
     Dosage: 5MG-15MG-10MG
     Route: 048
     Dates: start: 201108
  4. REVLIMID [Suspect]
     Dosage: 5 MILLIGRAM
     Route: 048
     Dates: start: 201210

REACTIONS (2)
  - Suicidal behaviour [Unknown]
  - Laboratory test abnormal [Unknown]
